FAERS Safety Report 9314085 (Version 5)
Quarter: 2013Q2

REPORT INFORMATION
  Report Type: Spontaneous
  Country: US (occurrence: US)
  Receive Date: 20130529
  Receipt Date: 20130621
  Transmission Date: 20140414
  Serious: Yes (Hospitalization)
  Sender: FDA-Public Use
  Company Number: US-JNJFOC-20130512715

PATIENT
  Sex: 0

DRUGS (2)
  1. XARELTO [Suspect]
     Indication: THROMBOSIS PROPHYLAXIS
     Route: 048
     Dates: start: 201305, end: 201305
  2. XARELTO [Suspect]
     Indication: BONE OPERATION
     Route: 048
     Dates: start: 201305, end: 201305

REACTIONS (3)
  - Haemorrhage [Recovered/Resolved]
  - Haemoglobin decreased [Recovered/Resolved]
  - Haematocrit decreased [Recovered/Resolved]
